FAERS Safety Report 14859184 (Version 2)
Quarter: 2018Q2

REPORT INFORMATION
  Report Type: Report from Study
  Country: DE (occurrence: DE)
  Receive Date: 20180508
  Receipt Date: 20180512
  Transmission Date: 20180711
  Serious: Yes (Hospitalization, Other)
  Sender: FDA-Public Use
  Company Number: DE-ROCHE-301150

PATIENT
  Age: 79 Year
  Sex: Female
  Weight: 67 kg

DRUGS (29)
  1. FUROSEMIDE. [Suspect]
     Active Substance: FUROSEMIDE
     Indication: OEDEMA
     Route: 048
     Dates: start: 20000218, end: 20000224
  2. TRAMAL [Suspect]
     Active Substance: TRAMADOL
     Indication: PAIN
     Dosage: DOSE UNIT: 20 DROP
     Route: 048
  3. RANITIC [Suspect]
     Active Substance: RANITIDINE HYDROCHLORIDE
     Indication: GASTRIC ULCER
     Route: 048
     Dates: start: 20000218, end: 20000224
  4. PHENHYDAN [Suspect]
     Active Substance: PHENYTOIN
     Indication: SEIZURE
     Route: 042
     Dates: start: 20000225, end: 20000226
  5. LASIX [Suspect]
     Active Substance: FUROSEMIDE
     Indication: CORONARY ARTERY DISEASE
     Route: 048
     Dates: start: 20000225, end: 20000227
  6. CLONAZEPAM. [Suspect]
     Active Substance: CLONAZEPAM
     Indication: SEIZURE
     Route: 042
     Dates: start: 20000224, end: 20000224
  7. TRAMAL [Suspect]
     Active Substance: TRAMADOL
     Indication: PAIN
     Dosage: DOSE UNIT: 20 DROP  EAR EYE NOSE DROP SOLUTION
     Route: 048
  8. PHENHYDAN [Suspect]
     Active Substance: PHENYTOIN
     Dosage: .
     Route: 048
     Dates: start: 20000226, end: 20000227
  9. AMLODIPIN [Suspect]
     Active Substance: AMLODIPINE BESYLATE
     Indication: CORONARY ARTERY DISEASE
     Route: 048
     Dates: start: 20000130, end: 20000220
  10. DIAZEPAM. [Suspect]
     Active Substance: DIAZEPAM
     Route: 042
     Dates: start: 20000218, end: 20000218
  11. EUSAPRIM FORTE [Suspect]
     Active Substance: SULFAMETHOXAZOLE\TRIMETHOPRIM
     Indication: URINARY TRACT INFECTION
     Route: 048
     Dates: start: 20000226, end: 20000227
  12. RANITIC [Suspect]
     Active Substance: RANITIDINE HYDROCHLORIDE
     Indication: PROPHYLAXIS
  13. AMLODIPIN [Suspect]
     Active Substance: AMLODIPINE BESYLATE
     Route: 048
  14. ASPIRIN. [Suspect]
     Active Substance: ASPIRIN
     Indication: CORONARY ARTERY DISEASE
     Route: 048
     Dates: start: 20000130, end: 20000227
  15. BEN-U-RON [Concomitant]
     Indication: PAIN
     Route: 054
     Dates: start: 20000226, end: 20000226
  16. TRAMAL [Suspect]
     Active Substance: TRAMADOL
     Indication: PAIN
     Dosage: STAT DOSES. FORM STRENGTH=20 UNIT
     Route: 048
     Dates: start: 20000219, end: 20000223
  17. DIAZEPAM. [Suspect]
     Active Substance: DIAZEPAM
     Route: 042
     Dates: start: 20000220, end: 20000220
  18. ISMO [Suspect]
     Active Substance: ISOSORBIDE MONONITRATE
     Indication: CORONARY ARTERY DISEASE
     Route: 048
     Dates: start: 20000225, end: 20000227
  19. PHENHYDAN [Suspect]
     Active Substance: PHENYTOIN
     Route: 048
  20. LUMINALE [Suspect]
     Active Substance: PHENOBARBITAL
     Indication: SEIZURE
     Route: 030
  21. TEGRETAL [Suspect]
     Active Substance: CARBAMAZEPINE
     Indication: SEIZURE
     Route: 048
     Dates: start: 20000125, end: 20000224
  22. DIAZEPAM. [Suspect]
     Active Substance: DIAZEPAM
     Indication: SEIZURE
     Route: 042
     Dates: start: 20000218, end: 20000225
  23. FUROSEMIDE. [Suspect]
     Active Substance: FUROSEMIDE
     Route: 048
     Dates: start: 20000130, end: 20000218
  24. ISOSORBIDDINITRAT [Suspect]
     Active Substance: ISOSORBIDE DINITRATE
     Indication: CORONARY ARTERY DISEASE
     Route: 048
     Dates: start: 20000218, end: 20000218
  25. ISOSORBIDDINITRAT [Suspect]
     Active Substance: ISOSORBIDE DINITRATE
     Route: 048
     Dates: start: 20000130, end: 20000218
  26. ZANTAC [Suspect]
     Active Substance: RANITIDINE HYDROCHLORIDE
     Indication: GASTRIC ULCER
     Route: 048
     Dates: start: 20000225, end: 20000227
  27. NORVASC [Concomitant]
     Active Substance: AMLODIPINE BESYLATE
     Indication: CORONARY ARTERY DISEASE
     Route: 048
     Dates: start: 20000130, end: 20000227
  28. EUSAPRIM FORTE [Suspect]
     Active Substance: SULFAMETHOXAZOLE\TRIMETHOPRIM
     Indication: CYSTITIS
     Route: 048
     Dates: start: 20000226, end: 20000227
  29. PHENHYDAN [Suspect]
     Active Substance: PHENYTOIN
     Route: 042

REACTIONS (6)
  - Rash erythematous [Recovered/Resolved]
  - Pruritus [Recovered/Resolved]
  - Mouth ulceration [Recovered/Resolved]
  - Stevens-Johnson syndrome [Recovering/Resolving]
  - Conjunctivitis [Recovered/Resolved]
  - Genital erosion [Recovered/Resolved]

NARRATIVE: CASE EVENT DATE: 20000227
